FAERS Safety Report 4426971-5 (Version None)
Quarter: 2004Q3

REPORT INFORMATION
  Report Type: 
  Country: None (occurrence: None)
  Receive Date: 20040726
  Receipt Date: 20040429
  Transmission Date: 20050211
  Serious: No
  Sender: FDA-Public Use
  Company Number: USA040465519

PATIENT
  Age: 71 Year
  Sex: Female
  Weight: 59 kg

DRUGS (5)
  1. FORTEO [Suspect]
     Indication: OSTEOPOROSIS
     Dosage: 20 UG/ 1 DAY
     Dates: start: 20031201
  2. SYNTHROID [Concomitant]
  3. VITAMINS NOS [Concomitant]
  4. CITRACAL + D [Concomitant]
  5. SILICA [Concomitant]

REACTIONS (4)
  - MUSCLE CRAMP [None]
  - PARAESTHESIA [None]
  - RESTLESS LEGS SYNDROME [None]
  - WEIGHT INCREASED [None]
